FAERS Safety Report 25432155 (Version 1)
Quarter: 2025Q2

REPORT INFORMATION
  Report Type: Spontaneous
  Country: NL (occurrence: NL)
  Receive Date: 20250613
  Receipt Date: 20250613
  Transmission Date: 20250716
  Serious: Yes (Life-Threatening, Hospitalization)
  Sender: AUROBINDO
  Company Number: NL-LRB-01060075

PATIENT
  Age: 75 Year
  Sex: Female
  Weight: 104 kg

DRUGS (2)
  1. ACETAMINOPHEN [Interacting]
     Active Substance: ACETAMINOPHEN
     Indication: Product used for unknown indication
     Dosage: 1000 MILLIGRAM, FOUR TIMES/DAY (1000 MG 4DD)
     Route: 048
     Dates: start: 20250425, end: 20250516
  2. FLUCLOXACILLIN [Interacting]
     Active Substance: FLUCLOXACILLIN
     Indication: Product used for unknown indication
     Dosage: 1 DOSAGE FORM, EVERY FOUR HOUR (6DD 1 STUK ICM PARACETAMOL 1000 MG 4DD)
     Route: 065
     Dates: start: 20250425, end: 20250516

REACTIONS (2)
  - Metabolic acidosis [Unknown]
  - Drug interaction [Unknown]
